FAERS Safety Report 6403006-6 (Version None)
Quarter: 2009Q4

REPORT INFORMATION
  Report Type: 
  Country: None (occurrence: None)
  Receive Date: 20091013
  Receipt Date: 20091006
  Transmission Date: 20100525
  Serious: Yes (Other)
  Sender: FDA-Public Use
  Company Number: DSA_41802_2009

PATIENT
  Age: 78 Year
  Sex: Male

DRUGS (1)
  1. XENAZINE [Suspect]
     Indication: TARDIVE DYSKINESIA
     Dosage: 75 MG QD, 12.5 MG QD
     Dates: start: 20090625, end: 20090101

REACTIONS (1)
  - PULMONARY EMBOLISM [None]
